FAERS Safety Report 18284216 (Version 4)
Quarter: 2020Q4

REPORT INFORMATION
  Report Type: Spontaneous
  Country: US (occurrence: US)
  Receive Date: 20200918
  Receipt Date: 20201203
  Transmission Date: 20210113
  Serious: No
  Sender: FDA-Public Use
  Company Number: US-PFIZER INC-2020336989

PATIENT
  Age: 61 Year
  Sex: Female

DRUGS (2)
  1. EUCRISA [Suspect]
     Active Substance: CRISABOROLE
     Indication: SKIN EXFOLIATION
     Dosage: UNK, 2X/DAY (APPLY TO AFFECTED AREA TWICE DAILY)
  2. EUCRISA [Suspect]
     Active Substance: CRISABOROLE
     Indication: SKIN DISORDER
     Dosage: UNK, AS NEEDED (USE ON HANDS TWICE DAILY + AS NEEDED)

REACTIONS (7)
  - Gait disturbance [Unknown]
  - Drug effective for unapproved indication [Unknown]
  - Skin laceration [Unknown]
  - Off label use [Unknown]
  - Condition aggravated [Unknown]
  - Sensitivity to weather change [Unknown]
  - Blister [Unknown]
